FAERS Safety Report 12140489 (Version 1)
Quarter: 2016Q1

REPORT INFORMATION
  Report Type: Spontaneous
  Country: US (occurrence: US)
  Receive Date: 20160303
  Receipt Date: 20160303
  Transmission Date: 20160526
  Serious: Yes (Hospitalization, Other)
  Sender: FDA-Public Use
  Company Number: US-TEVA-639218USA

PATIENT
  Sex: Male

DRUGS (2)
  1. ACICLOVIR [Suspect]
     Active Substance: ACYCLOVIR
     Indication: URINARY TRACT DISORDER
  2. ACICLOVIR [Suspect]
     Active Substance: ACYCLOVIR
     Indication: HERPES VIRUS INFECTION
     Dosage: 5 DOSAGE FORMS DAILY;
     Route: 065

REACTIONS (7)
  - Myocardial necrosis marker increased [Unknown]
  - Blood bilirubin increased [Unknown]
  - Skin discolouration [Unknown]
  - Neurological symptom [Unknown]
  - Abnormal behaviour [Unknown]
  - Laboratory test abnormal [Unknown]
  - Lethargy [Unknown]

NARRATIVE: CASE EVENT DATE: 201602
